FAERS Safety Report 6335119-1 (Version None)
Quarter: 2009Q3

REPORT INFORMATION
  Report Type: 
  Country: None (occurrence: None)
  Receive Date: 20090831
  Receipt Date: 20090825
  Transmission Date: 20100115
  Serious: Yes (Hospitalization)
  Sender: FDA-Public Use
  Company Number: US-GENENTECH-286453

PATIENT
  Sex: Female

DRUGS (12)
  1. BEVACIZUMAB [Suspect]
     Indication: OVARIAN CANCER
     Dosage: 15 MG/KG, UNK
     Route: 042
     Dates: start: 20081014, end: 20090609
  2. TAXOL [Concomitant]
     Indication: OVARIAN CANCER
     Dosage: 175 MG/M2, UNK
     Route: 042
     Dates: start: 20081014, end: 20090203
  3. CISPLATIN [Concomitant]
     Indication: OVARIAN CANCER
     Dosage: UNK
     Route: 033
     Dates: start: 20081014, end: 20081126
  4. SALSALATE [Concomitant]
     Indication: ARTHRALGIA
     Dosage: UNK
     Dates: start: 20090601
  5. SALSALATE [Concomitant]
     Indication: MYALGIA
  6. ACETAMINOPHEN [Concomitant]
     Indication: DRUG USE FOR UNKNOWN INDICATION
     Dosage: 500 MG, UNK
     Dates: start: 20081104
  7. DALTEPARIN SODIUM [Concomitant]
     Indication: DRUG USE FOR UNKNOWN INDICATION
     Dosage: 7500 IU, UNK
     Dates: start: 20090317
  8. DOCUSATE SODIUM [Concomitant]
     Indication: DRUG USE FOR UNKNOWN INDICATION
     Dosage: 100 MG, UNK
     Dates: start: 20081125
  9. MIRALAX [Concomitant]
     Indication: DRUG USE FOR UNKNOWN INDICATION
     Dosage: 17 G, UNK
     Dates: start: 20081014
  10. SODIUM CHLORIDE [Concomitant]
     Indication: DRUG USE FOR UNKNOWN INDICATION
     Dosage: 0.9 %, UNK
     Dates: start: 20081014
  11. OXYCODONE HCL AND ACETAMINOPHEN [Concomitant]
     Indication: DRUG USE FOR UNKNOWN INDICATION
     Dosage: 1 TABLET, UNK
     Dates: start: 20081020
  12. LORAZEPAM [Concomitant]
     Indication: DRUG USE FOR UNKNOWN INDICATION
     Dosage: 0.5 MG, UNK
     Dates: start: 20081021

REACTIONS (8)
  - ARTHRALGIA [None]
  - CEREBRAL HAEMORRHAGE [None]
  - DEHYDRATION [None]
  - DIZZINESS [None]
  - HICCUPS [None]
  - MYALGIA [None]
  - NAUSEA [None]
  - NERVOUS SYSTEM DISORDER [None]
